FAERS Safety Report 7425641-9 (Version None)
Quarter: 2011Q2

REPORT INFORMATION
  Report Type: 
  Country: None (occurrence: None)
  Receive Date: 20110418
  Receipt Date: 20110418
  Transmission Date: 20111010
  Serious: Yes (Life-Threatening)
  Sender: FDA-Public Use
  Company Number: None

PATIENT
  Sex: Female

DRUGS (2)
  1. DURAGESIC-50 [Suspect]
     Indication: NERVE INJURY
     Dates: start: 20060310
  2. DURAGESIC-50 [Suspect]
     Indication: PAIN
     Dates: start: 20060310

REACTIONS (2)
  - DERMATITIS CONTACT [None]
  - ANAPHYLACTIC REACTION [None]
